FAERS Safety Report 20704625 (Version 1)
Quarter: 2022Q2

REPORT INFORMATION
  Report Type: Spontaneous
  Country: US (occurrence: US)
  Receive Date: 20220413
  Receipt Date: 20220413
  Transmission Date: 20220721
  Serious: Yes (Other)
  Sender: FDA-Public Use
  Company Number: US-GLAXOSMITHKLINE-USCH2022013372

PATIENT
  Age: 57 Year
  Sex: Female

DRUGS (2)
  1. EXCEDRIN [Suspect]
     Active Substance: ACETAMINOPHEN\ASPIRIN\CAFFEINE
     Indication: Headache
     Dosage: UNK
  2. VOLTAREN [Suspect]
     Active Substance: DICLOFENAC SODIUM
     Indication: Headache
     Dosage: UNK

REACTIONS (6)
  - Drug dependence [Unknown]
  - Abdominal discomfort [Unknown]
  - Medication overuse headache [Unknown]
  - Drug withdrawal headache [Unknown]
  - Drug effective for unapproved indication [Unknown]
  - Off label use [Unknown]
